FAERS Safety Report 15323641 (Version 1)
Quarter: 2018Q3

REPORT INFORMATION
  Report Type: Spontaneous
  Country: US (occurrence: US)
  Receive Date: 20180827
  Receipt Date: 20180827
  Transmission Date: 20181010
  Serious: No
  Sender: FDA-Public Use
  Company Number: US-BAXTER-2018BAX022384

PATIENT
  Age: 72 Year
  Sex: Female

DRUGS (1)
  1. NITROGLYCERIN IN DEXTROSE [Suspect]
     Active Substance: NITROGLYCERIN
     Indication: CARDIAC OPERATION
     Route: 065

REACTIONS (1)
  - Chest pain [Unknown]
